FAERS Safety Report 11338453 (Version 1)
Quarter: 2015Q3

REPORT INFORMATION
  Report Type: Spontaneous
  Country: US (occurrence: US)
  Receive Date: 20150803
  Receipt Date: 20150803
  Transmission Date: 20151125
  Serious: No
  Sender: FDA-Public Use
  Company Number: US-ELI_LILLY_AND_COMPANY-US200708002904

PATIENT
  Sex: Male
  Weight: 20.86 kg

DRUGS (1)
  1. STRATTERA [Suspect]
     Active Substance: ATOMOXETINE HYDROCHLORIDE
     Indication: OPPOSITIONAL DEFIANT DISORDER
     Dosage: 25 MG, DAILY (1/D)
     Route: 048
     Dates: start: 200707, end: 200707

REACTIONS (3)
  - Aggression [Recovered/Resolved]
  - Hostility [Recovered/Resolved]
  - Oppositional defiant disorder [Recovered/Resolved]

NARRATIVE: CASE EVENT DATE: 200707
